FAERS Safety Report 8533338-7 (Version None)
Quarter: 2012Q3

REPORT INFORMATION
  Report Type: 
  Country: None (occurrence: None)
  Receive Date: 20120724
  Receipt Date: 20120717
  Transmission Date: 20120928
  Serious: Yes (Other)
  Sender: FDA-Public Use
  Company Number: CA-JNJFOC-20120301964

PATIENT
  Sex: Female
  Weight: 80 kg

DRUGS (2)
  1. REMICADE [Suspect]
     Indication: CROHN'S DISEASE
     Route: 042
     Dates: start: 20110713
  2. REMICADE [Suspect]
     Dosage: DOSAGE FREQUENCY INCREASED
     Route: 042

REACTIONS (4)
  - FATIGUE [None]
  - QUALITY OF LIFE DECREASED [None]
  - DECREASED APPETITE [None]
  - ABDOMINAL PAIN [None]
